FAERS Safety Report 4342716-1 (Version None)
Quarter: 2004Q1

REPORT INFORMATION
  Report Type: 
  Country: None (occurrence: None)
  Receive Date: 20040213
  Receipt Date: 20031026
  Transmission Date: 20041129
  Serious: Yes (Hospitalization)
  Sender: FDA-Public Use
  Company Number: 350134

PATIENT

DRUGS (2)
  1. PEGASYS [Suspect]
  2. RIBAVIRIN [Suspect]

REACTIONS (3)
  - IDIOPATHIC THROMBOCYTOPENIC PURPURA [None]
  - PETECHIAE [None]
  - PLATELET COUNT DECREASED [None]
